FAERS Safety Report 8187104-5 (Version None)
Quarter: 2012Q1

REPORT INFORMATION
  Report Type: 
  Country: None (occurrence: None)
  Receive Date: 20120302
  Receipt Date: 20120222
  Transmission Date: 20120608
  Serious: Yes (Other)
  Sender: FDA-Public Use
  Company Number: 2012010147

PATIENT

DRUGS (5)
  1. FOLIC ACID [Concomitant]
  2. DOCUSATE SODIUM (DOCUSATE SODIUM) [Concomitant]
  3. ROXICODONE [Suspect]
     Dosage: ORAL
     Dates: end: 20120124
  4. SOMA [Suspect]
     Dosage: ORAL
     Route: 048
     Dates: start: 20120101, end: 20120101
  5. ASCORBIC ACID [Concomitant]

REACTIONS (1)
  - HEPATITIS C [None]
